FAERS Safety Report 6079939-X (Version None)
Quarter: 2009Q1

REPORT INFORMATION
  Report Type: 
  Country: None (occurrence: None)
  Receive Date: 20090217
  Receipt Date: 20090205
  Transmission Date: 20090719
  Serious: Yes (Other)
  Sender: FDA-Public Use
  Company Number: PHHY2009BR01287

PATIENT
  Age: 47 Year
  Sex: Female
  Weight: 104 kg

DRUGS (2)
  1. DIOVAN HCT [Suspect]
     Indication: HYPERTENSION
     Dosage: 1 TABLET (160/12.5 MG) PER DAY
     Route: 048
     Dates: start: 20080912
  2. VITAMIN B COMPLEX CAP [Concomitant]
     Dosage: UNK

REACTIONS (14)
  - ANXIETY [None]
  - DYSPNOEA [None]
  - FALL [None]
  - FEELING ABNORMAL [None]
  - FORMICATION [None]
  - GLUCOSE TOLERANCE IMPAIRED [None]
  - HAEMATOMA [None]
  - JOINT INJURY [None]
  - MUSCULAR WEAKNESS [None]
  - OEDEMA PERIPHERAL [None]
  - PAIN IN EXTREMITY [None]
  - POOR PERIPHERAL CIRCULATION [None]
  - RED BLOOD CELL COUNT DECREASED [None]
  - SENSORY LOSS [None]
